FAERS Safety Report 11278333 (Version 2)
Quarter: 2015Q3

REPORT INFORMATION
  Report Type: Spontaneous
  Country: FR (occurrence: FR)
  Receive Date: 20150717
  Receipt Date: 20150902
  Transmission Date: 20151125
  Serious: Yes (Hospitalization, Other)
  Sender: FDA-Public Use
  Company Number: FR-ASTRAZENECA-2015SE67884

PATIENT
  Age: 27310 Day
  Sex: Female

DRUGS (12)
  1. EFFEXOR [Concomitant]
     Active Substance: VENLAFAXINE HYDROCHLORIDE
     Dosage: SR 37.5 MG TWO TIMES A DAY
  2. DIPROSALIC [Concomitant]
     Active Substance: BETAMETHASONE DIPROPIONATE
     Dosage: 2 APPLICATIONS PER DAY
  3. LIPANTHYL [Concomitant]
     Active Substance: FENOFIBRATE
  4. CANDESARTAN [Concomitant]
     Active Substance: CANDESARTAN
  5. LANTUS SOLOSTAR [Concomitant]
     Active Substance: INSULIN GLARGINE
  6. CONTRAMAL [Suspect]
     Active Substance: TRAMADOL HYDROCHLORIDE
     Indication: SCIATICA
     Route: 048
     Dates: start: 20150501, end: 20150510
  7. INEXIUM [Suspect]
     Active Substance: ESOMEPRAZOLE
     Indication: PROPHYLAXIS AGAINST GASTROINTESTINAL ULCER
     Route: 048
     Dates: start: 20150417, end: 20150512
  8. AERIUS [Suspect]
     Active Substance: DESLORATADINE
     Indication: PRURITUS
     Route: 048
     Dates: start: 20150505
  9. DOLIPRANE [Concomitant]
     Active Substance: ACETAMINOPHEN
     Dates: start: 20150501
  10. NORFLOXACINE [Suspect]
     Active Substance: NORFLOXACIN
     Indication: CYSTITIS
     Route: 048
     Dates: start: 20150506, end: 20150511
  11. KETOPROFENE [Suspect]
     Active Substance: KETOPROFEN
     Indication: SCIATICA
     Dosage: SR 100 MG TWO TIMES A DAY
     Route: 048
     Dates: start: 20150417
  12. METFORMINE [Concomitant]
     Active Substance: METFORMIN HYDROCHLORIDE

REACTIONS (4)
  - Cystitis [Unknown]
  - Acute generalised exanthematous pustulosis [Recovering/Resolving]
  - Pruritus [Unknown]
  - Acute kidney injury [Unknown]

NARRATIVE: CASE EVENT DATE: 20150511
